FAERS Safety Report 11896839 (Version 1)
Quarter: 2016Q1

REPORT INFORMATION
  Report Type: Spontaneous
  Country: US (occurrence: US)
  Receive Date: 20160107
  Receipt Date: 20160107
  Transmission Date: 20160526
  Serious: No
  Sender: FDA-Public Use
  Company Number: US-ALLERGAN-1519278US

PATIENT
  Age: 16 Year
  Sex: Male

DRUGS (1)
  1. ACZONE [Suspect]
     Active Substance: DAPSONE
     Indication: ACNE
     Dosage: UNK

REACTIONS (1)
  - Enuresis [Recovered/Resolved]
